FAERS Safety Report 4273659-X (Version None)
Quarter: 2004Q1

REPORT INFORMATION
  Report Type: 
  Country: None (occurrence: None)
  Receive Date: 20040116
  Receipt Date: 20040116
  Transmission Date: 20041129
  Serious: Yes (Life-Threatening, Hospitalization)
  Sender: FDA-Public Use
  Company Number: None

PATIENT
  Age: 20 Year
  Sex: Female
  Weight: 58.9676 kg

DRUGS (4)
  1. ZOLOFT [Suspect]
     Indication: BIPOLAR I DISORDER
     Dosage: 50 MG ONCE DAILY ORAL
     Route: 048
     Dates: start: 19960226, end: 19961108
  2. ZOLOFT [Suspect]
     Indication: DEPRESSION
     Dosage: 50 MG ONCE DAILY ORAL
     Route: 048
     Dates: start: 19960226, end: 19961108
  3. ZOLOFT [Suspect]
     Indication: BIPOLAR I DISORDER
     Dosage: 50 MG ONCE DAILY ORAL
     Route: 048
     Dates: start: 19961110, end: 19981218
  4. ZOLOFT [Suspect]
     Indication: DEPRESSION
     Dosage: 50 MG ONCE DAILY ORAL
     Route: 048
     Dates: start: 19961110, end: 19981218

REACTIONS (4)
  - ECONOMIC PROBLEM [None]
  - EDUCATIONAL PROBLEM [None]
  - HOMICIDAL IDEATION [None]
  - SUICIDE ATTEMPT [None]
